FAERS Safety Report 26126355 (Version 1)
Quarter: 2025Q4

REPORT INFORMATION
  Report Type: Spontaneous
  Country: CN (occurrence: CN)
  Receive Date: 20251205
  Receipt Date: 20251205
  Transmission Date: 20260118
  Serious: Yes (Hospitalization, Other)
  Sender: PURDUE
  Company Number: CN-NAPPMUNDI-GBR-2025-0130983

PATIENT
  Age: 78 Year
  Sex: Female
  Weight: 45 kg

DRUGS (1)
  1. OXYCODONE HYDROCHLORIDE [Suspect]
     Active Substance: OXYCODONE HYDROCHLORIDE
     Indication: Analgesic therapy
     Dosage: 20 MILLIGRAM, BID
     Route: 048
     Dates: start: 20251028, end: 20251101

REACTIONS (4)
  - Somnolence [Recovering/Resolving]
  - Delirium [Recovering/Resolving]
  - Irritability [Recovering/Resolving]
  - Pupillary reflex impaired [Recovering/Resolving]

NARRATIVE: CASE EVENT DATE: 20251101
